FAERS Safety Report 23096134 (Version 2)
Quarter: 2023Q4

REPORT INFORMATION
  Report Type: Spontaneous
  Country: ZA (occurrence: ZA)
  Receive Date: 20231023
  Receipt Date: 20231026
  Transmission Date: 20240109
  Serious: No
  Sender: FDA-Public Use
  Company Number: ZA-HALEON-ZACH2023049614

PATIENT

DRUGS (1)
  1. ACETAMINOPHEN\ASPIRIN\CAFFEINE [Suspect]
     Active Substance: ACETAMINOPHEN\ASPIRIN\CAFFEINE
     Indication: Headache
     Dosage: 1 DF

REACTIONS (4)
  - Abdominal pain upper [Unknown]
  - Illness [Unknown]
  - Suspected counterfeit product [Unknown]
  - Product complaint [Unknown]
